FAERS Safety Report 9479584 (Version 2)
Quarter: 2013Q3

REPORT INFORMATION
  Report Type: Report from Study
  Country: MX (occurrence: MX)
  Receive Date: 20130827
  Receipt Date: 20130827
  Transmission Date: 20140515
  Serious: Yes (Other)
  Sender: FDA-Public Use
  Company Number: PHHY2011MX08474

PATIENT
  Age: 63 Year
  Sex: Female

DRUGS (2)
  1. ONBREZ [Suspect]
     Indication: ASTHMA
     Dosage: 300 UG, DAILY
     Dates: start: 201101
  2. ONBREZ [Suspect]
     Indication: OFF LABEL USE
     Dosage: 150 UG, DAILY

REACTIONS (4)
  - Bronchial disorder [Recovered/Resolved]
  - Dyspnoea [Recovered/Resolved]
  - Throat irritation [Not Recovered/Not Resolved]
  - Oropharyngeal pain [Not Recovered/Not Resolved]
